FAERS Safety Report 17639671 (Version 10)
Quarter: 2020Q3

REPORT INFORMATION
  Report Type: Report from Study
  Country: US (occurrence: US)
  Receive Date: 20200407
  Receipt Date: 20200819
  Transmission Date: 20201102
  Serious: Yes (Hospitalization)
  Sender: FDA-Public Use
  Company Number: US-ACTELION-A-NJ2020-201333

PATIENT
  Sex: Female
  Weight: 68.03 kg

DRUGS (4)
  1. REMODULIN [Concomitant]
     Active Substance: TREPROSTINIL
     Dosage: 80 NG/KG, PER MIN
  2. OPSUMIT [Suspect]
     Active Substance: MACITENTAN
     Indication: PULMONARY ARTERIAL HYPERTENSION
     Dosage: 10 MG, QD
     Route: 048
  3. SILDENAFIL CITRATE. [Suspect]
     Active Substance: SILDENAFIL CITRATE
     Indication: PRODUCT USED FOR UNKNOWN INDICATION
     Route: 065
  4. TADALAFIL. [Concomitant]
     Active Substance: TADALAFIL

REACTIONS (10)
  - Sepsis [Unknown]
  - Dehydration [Unknown]
  - Gastrostomy [Unknown]
  - Hospitalisation [Unknown]
  - Diarrhoea [Unknown]
  - Abdominal pain [Unknown]
  - Adverse event [Unknown]
  - Seizure [Unknown]
  - Blood electrolytes decreased [Unknown]
  - Hypotension [Unknown]
